FAERS Safety Report 16326379 (Version 2)
Quarter: 2019Q2

REPORT INFORMATION
  Report Type: Spontaneous
  Country: DE (occurrence: DE)
  Receive Date: 20190517
  Receipt Date: 20190625
  Transmission Date: 20190711
  Serious: Yes (Other)
  Sender: FDA-Public Use
  Company Number: PHHY2019DE109641

PATIENT
  Sex: Female
  Weight: 104 kg

DRUGS (4)
  1. MCP [Concomitant]
     Active Substance: METOCLOPRAMIDE HYDROCHLORIDE
     Indication: NAUSEA
     Dosage: 10 MG, UNK
     Route: 065
     Dates: start: 20180824
  2. LETROZOLE. [Suspect]
     Active Substance: LETROZOLE
     Indication: BREAST CANCER
     Dosage: 2.5 MG, UNK
     Route: 065
     Dates: start: 20190101
  3. LOPERAMIDE [Concomitant]
     Active Substance: LOPERAMIDE
     Indication: PERISTALSIS VISIBLE
     Dosage: 2 MG, UNK
     Route: 065
     Dates: start: 20190111
  4. MCP [Concomitant]
     Active Substance: METOCLOPRAMIDE HYDROCHLORIDE
     Indication: VOMITING

REACTIONS (7)
  - Heart rate increased [Recovered/Resolved]
  - Anal abscess [Recovered/Resolved]
  - Decreased appetite [Recovered/Resolved]
  - Diabetes mellitus [Recovering/Resolving]
  - Affect lability [Recovered/Resolved]
  - Ageusia [Recovered/Resolved]
  - Hypertension [Recovered/Resolved]

NARRATIVE: CASE EVENT DATE: 20190131
